FAERS Safety Report 10362135 (Version 1)
Quarter: 2014Q3

REPORT INFORMATION
  Report Type: Spontaneous
  Country: GB (occurrence: GB)
  Receive Date: 20140805
  Receipt Date: 20140805
  Transmission Date: 20150326
  Serious: Yes (Other)
  Sender: FDA-Public Use
  Company Number: GB-TEVA-497084ISR

PATIENT
  Age: 79 Year
  Sex: Male

DRUGS (2)
  1. ZISPIN [Suspect]
     Active Substance: MIRTAZAPINE
     Indication: INSOMNIA
     Route: 048
  2. MIRTAZAPINE. [Suspect]
     Active Substance: MIRTAZAPINE
     Indication: INSOMNIA
     Dosage: 15 MG, EVERY OTHER NIGHT
     Route: 048

REACTIONS (3)
  - Anxiety [Unknown]
  - Bone cancer [Unknown]
  - Drug ineffective [Unknown]
